FAERS Safety Report 4319325-3 (Version None)
Quarter: 2004Q1

REPORT INFORMATION
  Report Type: 
  Country: None (occurrence: None)
  Receive Date: 20040316
  Receipt Date: 20040302
  Transmission Date: 20041129
  Serious: Yes (Death, Other)
  Sender: FDA-Public Use
  Company Number: 2004202218DE

PATIENT
  Age: 77 Year
  Sex: Female

DRUGS (4)
  1. HEPARIN SODIUM(HEPARIN SODIUM) SOLUTION, STERILE [Suspect]
     Dosage: 300 U/KG/24 H, IV; SEE IMAGE
     Route: 042
  2. ASPIRIN [Suspect]
     Dosage: 300 MG, QD
  3. CLOPIDOGREL (CLOPIDOGREL) [Suspect]
     Dosage: 75 MG, DAILY
  4. ATROPINE [Concomitant]

REACTIONS (2)
  - HYDROCEPHALUS [None]
  - SUBARACHNOID HAEMORRHAGE [None]
